FAERS Safety Report 5187259-0 (Version None)
Quarter: 2006Q4

REPORT INFORMATION
  Report Type: 
  Country: None (occurrence: None)
  Receive Date: 20061212
  Receipt Date: 20061204
  Transmission Date: 20070319
  Serious: Yes (Other)
  Sender: FDA-Public Use
  Company Number: HQWYE085206AUG04

PATIENT
  Age: 56 Year
  Sex: Female
  Weight: 60.84 kg

DRUGS (2)
  1. PREMARIN [Suspect]
  2. PROVERA [Suspect]

REACTIONS (15)
  - ARRHYTHMIA [None]
  - ATROPHY [None]
  - BREAST CANCER FEMALE [None]
  - BREAST CANCER IN SITU [None]
  - BREAST CANCER METASTATIC [None]
  - COLON CANCER STAGE III [None]
  - COLONIC POLYP [None]
  - ENDOMETRIAL HYPERTROPHY [None]
  - HAEMORRHOIDS [None]
  - HEPATIC CYST [None]
  - INTESTINAL MASS [None]
  - METASTASES TO LYMPH NODES [None]
  - OESTROGEN RECEPTOR ASSAY POSITIVE [None]
  - PROGESTERONE RECEPTOR ASSAY POSITIVE [None]
  - RENAL CYST [None]
